FAERS Safety Report 7970124-0 (Version None)
Quarter: 2011Q4

REPORT INFORMATION
  Report Type: 
  Country: None (occurrence: None)
  Receive Date: 20111122
  Receipt Date: 20110831
  Transmission Date: 20120403
  Serious: Yes (Hospitalization)
  Sender: FDA-Public Use
  Company Number: PHHY2011US41844

PATIENT
  Age: 35 Year
  Sex: Female
  Weight: 77.1 kg

DRUGS (3)
  1. TRIHEXYPHENDYL HYDROCHLORIDE [Concomitant]
  2. LORAZEPAM [Concomitant]
  3. GILENYA [Suspect]
     Indication: MULTIPLE SCLEROSIS
     Dosage: 0.5 MG, DAILY, ORAL; 0.5 MG, DAILY, ORAL
     Route: 048
     Dates: start: 20110322, end: 20110512

REACTIONS (14)
  - MENTAL STATUS CHANGES [None]
  - INFECTION [None]
  - DIARRHOEA [None]
  - LEUKOCYTOSIS [None]
  - TACHYCARDIA [None]
  - DYSARTHRIA [None]
  - PYREXIA [None]
  - CENTRAL NERVOUS SYSTEM LESION [None]
  - MULTIPLE SCLEROSIS RELAPSE [None]
  - LIVER FUNCTION TEST ABNORMAL [None]
  - TREMOR [None]
  - HYPOAESTHESIA [None]
  - NYSTAGMUS [None]
  - UNRESPONSIVE TO STIMULI [None]
